FAERS Safety Report 4538975-2 (Version None)
Quarter: 2004Q4

REPORT INFORMATION
  Report Type: 
  Country: None (occurrence: None)
  Receive Date: 20041222
  Receipt Date: 20041203
  Transmission Date: 20050328
  Serious: Yes (Other)
  Sender: FDA-Public Use
  Company Number: US_0405102904

PATIENT
  Age: 73 Year
  Sex: Female

DRUGS (4)
  1. FORTEO [Suspect]
     Indication: OSTEOPOROSIS
     Dosage: 20 UG / 1 DAY
  2. CITRACAL (CALCIUM CITRATE) [Concomitant]
  3. ROCALTROL [Concomitant]
  4. MULTI-VITAMIN [Concomitant]

REACTIONS (6)
  - ASTHENIA [None]
  - BLOOD ALBUMIN DECREASED [None]
  - BLOOD CREATININE INCREASED [None]
  - CONFUSIONAL STATE [None]
  - DEMENTIA [None]
  - HYPERCALCAEMIA [None]
